FAERS Safety Report 15206118 (Version 4)
Quarter: 2018Q3

REPORT INFORMATION
  Report Type: Report from Study
  Country: DE (occurrence: DE)
  Receive Date: 20180727
  Receipt Date: 20180816
  Transmission Date: 20181010
  Serious: Yes (Life-Threatening, Hospitalization)
  Sender: FDA-Public Use
  Company Number: DE-AMGEN-DEUCT2018101528

PATIENT
  Age: 71 Year
  Sex: Male

DRUGS (17)
  1. 5?FU [Suspect]
     Active Substance: FLUOROURACIL
     Indication: COLORECTAL CANCER METASTATIC
     Dosage: 2400 MG/M2, UNK
     Route: 042
     Dates: start: 20180313
  2. PANITUMUMAB [Suspect]
     Active Substance: PANITUMUMAB
     Indication: COLORECTAL CANCER METASTATIC
     Dosage: 474 MG, UNK
     Route: 042
     Dates: start: 20180313
  3. OXALIPLATIN. [Suspect]
     Active Substance: OXALIPLATIN
     Indication: COLORECTAL CANCER METASTATIC
     Dosage: 85 MG/M2, UNK
     Route: 042
     Dates: start: 20180313
  4. MAGNESIUM [Concomitant]
     Active Substance: MAGNESIUM
     Indication: HYPOMAGNESAEMIA
     Dosage: 30 MG, TID
     Route: 048
     Dates: start: 20180307, end: 20180704
  5. SIMVASTATIN. [Concomitant]
     Active Substance: SIMVASTATIN
     Dosage: 40 MG, QHS
     Route: 048
  6. TIOTROPIUM BROMIDE [Concomitant]
     Active Substance: TIOTROPIUM BROMIDE
     Dosage: 18 MCG, QD
     Route: 055
  7. FOLINIC ACID [Suspect]
     Active Substance: LEUCOVORIN
     Indication: COLORECTAL CANCER METASTATIC
     Dosage: 400 MG/M2, UNK
     Route: 042
     Dates: start: 20180313
  8. PANITUMUMAB [Suspect]
     Active Substance: PANITUMUMAB
     Dosage: 374 MG, UNK
     Route: 042
     Dates: start: 20180807
  9. 5?FU [Suspect]
     Active Substance: FLUOROURACIL
     Dosage: UNK MG/M2, UNK
     Route: 042
     Dates: start: 20180807
  10. MAGNESIUM [Concomitant]
     Active Substance: MAGNESIUM
     Dosage: 5000 MG IN 50 ML, UNK
     Route: 042
  11. ACETYLSALICYLSAEURE [Concomitant]
     Active Substance: ASPIRIN
     Dosage: 100 MG, QD
     Route: 048
  12. CALCIUM [Concomitant]
     Active Substance: CALCIUM
     Indication: HYPOCALCAEMIA
     Dosage: 1000 MG, QD
     Route: 048
     Dates: start: 20180705
  13. RAMIPRIL. [Concomitant]
     Active Substance: RAMIPRIL
     Dosage: 5 MG, QD
     Route: 048
  14. MAGNESIUM [Concomitant]
     Active Substance: MAGNESIUM
     Indication: ELECTROLYTE IMBALANCE
     Dosage: 180 MG, TID
     Route: 048
     Dates: start: 20180705
  15. DOXYCYCLIN [Concomitant]
     Active Substance: DOXYCYCLINE
     Dosage: 200 MG, QD
     Route: 048
  16. METOPROLOL. [Concomitant]
     Active Substance: METOPROLOL
     Dosage: 50 MG, BID
     Route: 048
  17. PREGABALIN. [Concomitant]
     Active Substance: PREGABALIN
     Dosage: 25 MG, BID
     Route: 048

REACTIONS (1)
  - Electrolyte imbalance [Recovered/Resolved]

NARRATIVE: CASE EVENT DATE: 20180722
